FAERS Safety Report 19583806 (Version 1)
Quarter: 2021Q3

REPORT INFORMATION
  Report Type: Spontaneous
  Country: NL (occurrence: FR)
  Receive Date: 20210720
  Receipt Date: 20210720
  Transmission Date: 20211014
  Serious: Yes (Hospitalization, Other)
  Sender: FDA-Public Use
  Company Number: FR-FRESENIUS KABI-FK202107255

PATIENT
  Age: 6 Year
  Sex: Male

DRUGS (31)
  1. VINCRISTINE [Suspect]
     Active Substance: VINCRISTINE
     Dosage: 1.25 MG/INJ
     Route: 065
     Dates: start: 20161219
  2. VINCRISTINE [Suspect]
     Active Substance: VINCRISTINE
     Dosage: 1.25 MG/INJ
     Route: 065
     Dates: start: 20161205
  3. VINCRISTINE [Suspect]
     Active Substance: VINCRISTINE
     Dosage: 1.3 MG/INJ
     Route: 065
     Dates: start: 20170113
  4. PEGASPARGASE [Suspect]
     Active Substance: PEGASPARGASE
     Dosage: 1050 IU, UNK
     Route: 065
     Dates: start: 20161202
  5. METHOTREXATE. [Suspect]
     Active Substance: METHOTREXATE
     Dosage: 4220 MG/INJ
     Route: 042
     Dates: start: 20170320, end: 20170510
  6. PEGASPARGASE [Suspect]
     Active Substance: PEGASPARGASE
     Indication: ACUTE LYMPHOCYTIC LEUKAEMIA
     Dosage: 1050 IU, UNK
     Route: 065
     Dates: start: 20161216
  7. PEGASPARGASE [Suspect]
     Active Substance: PEGASPARGASE
     Dosage: 1087.5 IU, UNK
     Route: 065
     Dates: start: 20170113
  8. METHOTREXATE. [Suspect]
     Active Substance: METHOTREXATE
     Dosage: 4550 MG/INJ
     Route: 042
     Dates: start: 20170510
  9. METHOTREXATE. [Suspect]
     Active Substance: METHOTREXATE
     Dosage: 12 MG, UNK
     Route: 042
     Dates: start: 20161215
  10. VINCRISTINE [Suspect]
     Active Substance: VINCRISTINE
     Dosage: 1.26 MG/INJ
     Route: 065
     Dates: start: 20161128
  11. MERCAPTOPURINE. [Suspect]
     Active Substance: MERCAPTOPURINE
     Indication: ACUTE LYMPHOCYTIC LEUKAEMIA
     Dosage: 25 MG, UNK
     Route: 048
     Dates: start: 20170313, end: 20170517
  12. METHOTREXATE. [Suspect]
     Active Substance: METHOTREXATE
     Dosage: 4220 MG/INJ
     Route: 042
     Dates: start: 20170320, end: 20170510
  13. METHOTREXATE. [Suspect]
     Active Substance: METHOTREXATE
     Dosage: 4220 MG/INJ
     Route: 042
     Dates: start: 20170403
  14. METHOTREXATE. [Suspect]
     Active Substance: METHOTREXATE
     Dosage: 4550 MG/INJ
     Route: 042
     Dates: start: 20170426
  15. VINCRISTINE [Suspect]
     Active Substance: VINCRISTINE
     Dosage: 1.3 MG/INJ
     Route: 065
     Dates: start: 20170120
  16. METHOTREXATE. [Suspect]
     Active Substance: METHOTREXATE
     Dosage: 12 UNK, UNK
     Route: 037
     Dates: start: 20170321, end: 20170511
  17. METHOTREXATE. [Suspect]
     Active Substance: METHOTREXATE
     Dosage: 12 UNK, UNK
     Route: 037
     Dates: start: 20170321, end: 20170511
  18. METHOTREXATE. [Suspect]
     Active Substance: METHOTREXATE
     Indication: ACUTE LYMPHOCYTIC LEUKAEMIA
     Dosage: 12 MG, UNK
     Route: 042
     Dates: start: 20161215
  19. METHOTREXATE. [Suspect]
     Active Substance: METHOTREXATE
     Dosage: 4220 MG/INJ
     Route: 042
     Dates: start: 20170403
  20. METHOTREXATE. [Suspect]
     Active Substance: METHOTREXATE
     Dosage: 4220 MG, UNK
     Route: 037
     Dates: start: 20170320, end: 20170510
  21. METHOTREXATE. [Suspect]
     Active Substance: METHOTREXATE
     Dosage: 4550 MG/INJ
     Route: 042
     Dates: start: 20170510
  22. METHOTREXATE. [Suspect]
     Active Substance: METHOTREXATE
     Dosage: 4550 MG/INJ
     Route: 042
     Dates: start: 20170426
  23. VINCRISTINE [Suspect]
     Active Substance: VINCRISTINE
     Indication: ACUTE LYMPHOCYTIC LEUKAEMIA
     Dosage: 1.25 MG/INJ
     Route: 065
     Dates: start: 20161212
  24. PEGASPARGASE [Suspect]
     Active Substance: PEGASPARGASE
     Dosage: 1250 IU, 1X/DAY:QD
     Route: 065
  25. CYCLOPHOSPHAMIDE. [Suspect]
     Active Substance: CYCLOPHOSPHAMIDE
     Indication: ACUTE LYMPHOCYTIC LEUKAEMIA
     Dosage: 880 MG, UNK
     Route: 065
     Dates: start: 20161230
  26. CYTARABINE (MANUFACTURER UNKNOWN) [Suspect]
     Active Substance: CYTARABINE
     Indication: PRODUCT USED FOR UNKNOWN INDICATION
     Route: 065
  27. METHOTREXATE. [Suspect]
     Active Substance: METHOTREXATE
     Dosage: 4220 MG, UNK
     Route: 037
     Dates: start: 20170320, end: 20170510
  28. DEXAMETHASONE. [Suspect]
     Active Substance: DEXAMETHASONE
     Indication: ACUTE LYMPHOCYTIC LEUKAEMIA
     Dosage: UNK
     Route: 065
     Dates: start: 20161128, end: 20161219
  29. METHOTREXATE. [Suspect]
     Active Substance: METHOTREXATE
     Indication: GASTROENTERITIS ROTAVIRUS
     Dosage: 12 MG, UNK
     Route: 042
     Dates: start: 20161203
  30. METHOTREXATE. [Suspect]
     Active Substance: METHOTREXATE
     Dosage: 12 MG, UNK
     Route: 042
     Dates: start: 20161203
  31. SULFAMETHOXAZOLE/TRIMETHOPRIM [Concomitant]
     Active Substance: SULFAMETHOXAZOLE\TRIMETHOPRIM
     Indication: GASTROENTERITIS ROTAVIRUS
     Dosage: 550 MG, 3X A WEEK
     Route: 048
     Dates: start: 20161129

REACTIONS (1)
  - Gastroenteritis rotavirus [Recovered/Resolved]

NARRATIVE: CASE EVENT DATE: 20170417
